FAERS Safety Report 15750026 (Version 1)
Quarter: 2018Q4

REPORT INFORMATION
  Report Type: Spontaneous
  Country: US (occurrence: US)
  Receive Date: 20181221
  Receipt Date: 20181221
  Transmission Date: 20190205
  Serious: Yes (Hospitalization)
  Sender: FDA-Public Use
  Company Number: None

PATIENT
  Sex: Female

DRUGS (5)
  1. COSENTYX [Suspect]
     Active Substance: SECUKINUMAB
     Indication: PSORIASIS
     Dosage: ?          OTHER FREQUENCY:Q4WKS;?
     Route: 048
     Dates: start: 20181120
  2. PREDNISONE. [Concomitant]
     Active Substance: PREDNISONE
  3. FUROSEMIDE. [Concomitant]
     Active Substance: FUROSEMIDE
  4. HALOBETASOL [Concomitant]
     Active Substance: HALOBETASOL PROPIONATE
  5. COLCHICINE. [Concomitant]
     Active Substance: COLCHICINE

REACTIONS (5)
  - Systemic lupus erythematosus [None]
  - Condition aggravated [None]
  - Arthralgia [None]
  - Joint swelling [None]
  - Rash [None]
